FAERS Safety Report 7547645-8 (Version None)
Quarter: 2011Q2

REPORT INFORMATION
  Report Type: 
  Country: None (occurrence: None)
  Receive Date: 20110614
  Receipt Date: 20110606
  Transmission Date: 20111010
  Serious: Yes (Death)
  Sender: FDA-Public Use
  Company Number: JP-MERCK-1106USA00553

PATIENT
  Age: 80 Year
  Sex: Male

DRUGS (1)
  1. JANUVIA [Suspect]
     Indication: HYPERGLYCAEMIA
     Route: 048

REACTIONS (2)
  - SEPSIS [None]
  - RASH [None]
